FAERS Safety Report 9258160 (Version 1)
Quarter: 2013Q2

REPORT INFORMATION
  Report Type: Spontaneous
  Country: LK (occurrence: None)
  Receive Date: 20130424
  Receipt Date: 20130424
  Transmission Date: 20140414
  Serious: Yes (Hospitalization)
  Sender: FDA-Public Use
  Company Number: LK-ALKEM-000036

PATIENT
  Age: 18 Year
  Sex: Female

DRUGS (1)
  1. METFORMIN (METFORMIN) [Suspect]

REACTIONS (10)
  - Suicide attempt [None]
  - Metabolic acidosis [None]
  - Grand mal convulsion [None]
  - Renal failure acute [None]
  - Haemodialysis [None]
  - Vomiting [None]
  - Hypotension [None]
  - Hypoglycaemic seizure [None]
  - Drug interaction [None]
  - Kussmaul respiration [None]
